FAERS Safety Report 10825727 (Version 7)
Quarter: 2017Q4

REPORT INFORMATION
  Report Type: Report from Study
  Country: None (occurrence: US)
  Receive Date: 20150219
  Receipt Date: 20171106
  Transmission Date: 20180320
  Serious: Yes (Other)
  Sender: FDA-Public Use
  Company Number: US-ABBVIE-14K-163-1318089-00

PATIENT
  Sex: Female
  Weight: 122.13 kg

DRUGS (3)
  1. HUMIRA [Suspect]
     Active Substance: ADALIMUMAB
     Indication: PSORIATIC ARTHROPATHY
     Route: 058
  2. METHOTREXATE. [Suspect]
     Active Substance: METHOTREXATE
     Indication: PRODUCT USED FOR UNKNOWN INDICATION
     Route: 065
     Dates: end: 2014
  3. HUMIRA [Suspect]
     Active Substance: ADALIMUMAB
     Indication: PSORIASIS
     Route: 058
     Dates: start: 20150601, end: 2017

REACTIONS (14)
  - Psoriatic arthropathy [Not Recovered/Not Resolved]
  - Intraductal proliferative breast lesion [Recovered/Resolved]
  - Spider vein [Recovered/Resolved]
  - Incorrect dose administered [Recovering/Resolving]
  - Radiation injury [Not Recovered/Not Resolved]
  - Breast cyst [Unknown]
  - Asthenia [Not Recovered/Not Resolved]
  - Psoriasis [Not Recovered/Not Resolved]
  - Psoriasis [Not Recovered/Not Resolved]
  - Fatigue [Not Recovered/Not Resolved]
  - Arthritis [Recovering/Resolving]
  - Inappropriate schedule of drug administration [Unknown]
  - Amnesia [Not Recovered/Not Resolved]
  - Somnolence [Unknown]

NARRATIVE: CASE EVENT DATE: 2013
